FAERS Safety Report 6278779-6 (Version None)
Quarter: 2009Q3

REPORT INFORMATION
  Report Type: 
  Country: None (occurrence: None)
  Receive Date: 20090723
  Receipt Date: 20070605
  Transmission Date: 20100115
  Serious: Yes (Other)
  Sender: FDA-Public Use
  Company Number: US-ASTRAZENECA-2006UW10938

PATIENT
  Age: 16508 Day
  Sex: Male
  Weight: 103.4 kg

DRUGS (52)
  1. SEROQUEL [Suspect]
     Dosage: 200 MG - 500 MG
     Route: 048
     Dates: start: 20050306
  2. SEROQUEL [Suspect]
     Route: 048
  3. ZYPREXA [Suspect]
  4. ABILIFY [Concomitant]
  5. RISPERDAL [Concomitant]
  6. CODEINE [Concomitant]
  7. TYLENOL (CAPLET) [Concomitant]
  8. PREVACID [Concomitant]
  9. DILANTIN [Concomitant]
  10. ROBAXIN [Concomitant]
  11. MOTRIN [Concomitant]
  12. METFORMIN HCL [Concomitant]
  13. ASPIRIN [Concomitant]
  14. LOVASTATIN [Concomitant]
  15. ROSIGLITAZONE [Concomitant]
  16. CELEXA [Concomitant]
  17. PYRIDOXINE [Concomitant]
  18. ISONIAZID [Concomitant]
  19. PRILOSEC [Concomitant]
  20. WELLBUTRIN [Concomitant]
  21. PAXIAL [Concomitant]
  22. BENADRYL [Concomitant]
  23. SERTRALINE [Concomitant]
  24. MICONAZOLE [Concomitant]
  25. FLUTICASONE [Concomitant]
  26. TOLNAFTATE [Concomitant]
  27. NPH HUMAN INSULIN [Concomitant]
  28. REGULAR HUMAN INSULIN [Concomitant]
  29. HYDROXYZINE [Concomitant]
  30. TRIAMCINOLONE [Concomitant]
  31. CYCLOBENZAPRINE [Concomitant]
  32. TRAZODONE HCL [Concomitant]
  33. MIRTAZAPINE [Concomitant]
  34. ERYTHROMYCIN [Concomitant]
  35. SEPTRA DS [Concomitant]
  36. ROCEPHIN [Concomitant]
  37. KEFLEX [Concomitant]
  38. MUPIROCIN [Concomitant]
  39. TEGRETOL [Concomitant]
  40. MYSOLINE [Concomitant]
  41. PEPCID [Concomitant]
  42. AMLODIPINE [Concomitant]
  43. GLIPIZIDE [Concomitant]
  44. TOPIRAMATE [Concomitant]
  45. DYAZIDE [Concomitant]
  46. GEMFIBROZIL [Concomitant]
  47. CEFACLOR [Concomitant]
  48. LOSARTAN POTASSIUM [Concomitant]
  49. CLINDAMYCIN [Concomitant]
  50. CHLORPHENIRAMINE [Concomitant]
  51. CIPROFLOXACIN [Concomitant]
  52. ENALAPRIL MALEATE [Concomitant]

REACTIONS (2)
  - DIABETES MELLITUS [None]
  - DIABETIC NEUROPATHY [None]
